FAERS Safety Report 4520951-7 (Version None)
Quarter: 2004Q4

REPORT INFORMATION
  Report Type: 
  Country: None (occurrence: None)
  Receive Date: 20041206
  Receipt Date: 20041206
  Transmission Date: 20050328
  Serious: Yes (Hospitalization)
  Sender: FDA-Public Use
  Company Number: None

PATIENT
  Age: 19 Year
  Sex: Male
  Weight: 74.9 kg

DRUGS (1)
  1. DILANTIN [Suspect]
     Indication: GRAND MAL CONVULSION
     Dosage: 100-400MG   BEDTIME    ORAL
     Route: 048
     Dates: start: 20041028, end: 20041127

REACTIONS (6)
  - AGRANULOCYTOSIS [None]
  - DYSPNOEA [None]
  - ODYNOPHAGIA [None]
  - PHARYNGOLARYNGEAL PAIN [None]
  - SWELLING [None]
  - TONSILLAR DISORDER [None]
